FAERS Safety Report 17601862 (Version 1)
Quarter: 2020Q1

REPORT INFORMATION
  Report Type: Spontaneous
  Country: RU (occurrence: RU)
  Receive Date: 20200331
  Receipt Date: 20200331
  Transmission Date: 20200409
  Serious: Yes (Other)
  Sender: FDA-Public Use
  Company Number: RU-TERSERA THERAPEUTICS LLC-2020TRS000757

PATIENT

DRUGS (5)
  1. ZOLADEX [Suspect]
     Active Substance: GOSERELIN ACETATE
     Dosage: 3,6 MG EVERY MONTH OR 10,8 MG EVERY 3 MONTHS
     Route: 058
     Dates: start: 201910
  2. ZOLADEX [Suspect]
     Active Substance: GOSERELIN ACETATE
     Dosage: 10,8 MG EVERY 3 MONTHS
     Route: 058
     Dates: start: 201912
  3. ZOLADEX [Suspect]
     Active Substance: GOSERELIN ACETATE
     Indication: PROSTATE CANCER
     Dosage: UNK
     Route: 058
     Dates: start: 2016
  4. BICALUTAMIDE. [Concomitant]
     Active Substance: BICALUTAMIDE
     Indication: PRODUCT USED FOR UNKNOWN INDICATION
     Dosage: UNK
     Route: 065
  5. ZOLADEX [Suspect]
     Active Substance: GOSERELIN ACETATE
     Dosage: 3,6 MG EVERY MONTH OR 10,8 MG EVERY 3 MONTHS
     Route: 058
     Dates: start: 201911

REACTIONS (4)
  - Nausea [Recovered/Resolved]
  - Malignant neoplasm progression [Recovered/Resolved]
  - Libido increased [Recovered/Resolved]
  - Abnormal dreams [Recovered/Resolved]
